FAERS Safety Report 4463384-4 (Version None)
Quarter: 2004Q3

REPORT INFORMATION
  Report Type: 
  Country: None (occurrence: None)
  Receive Date: 20040928
  Receipt Date: 20040908
  Transmission Date: 20050211
  Serious: Yes (Hospitalization)
  Sender: FDA-Public Use
  Company Number: B0344725A

PATIENT
  Age: 35 Year
  Sex: Male

DRUGS (6)
  1. COMIBIVIR TABLET [Suspect]
     Dosage: 1 TABLET TWICE PER DAY/ ORAL
     Route: 048
  2. EFAVIRENZ (FORMULATION UNKNOWN) (EFAVIRENZ) [Suspect]
     Dosage: 600 MG/ PER DAY/ ORAL
     Route: 048
  3. IMIPENEM + CILASTATIN NA [Concomitant]
  4. FOSCARNET SODIUM [Concomitant]
  5. ETOPOSIDE [Concomitant]
  6. DEXAMETHASONE [Concomitant]

REACTIONS (18)
  - ALANINE AMINOTRANSFERASE INCREASED [None]
  - ASPARTATE AMINOTRANSFERASE INCREASED [None]
  - BILIRUBIN CONJUGATED INCREASED [None]
  - BLOOD BILIRUBIN INCREASED [None]
  - BLOOD LACTATE DEHYDROGENASE INCREASED [None]
  - BONE MARROW DEPRESSION [None]
  - CONFUSIONAL STATE [None]
  - DISEASE PROGRESSION [None]
  - DRUG INEFFECTIVE [None]
  - HEPATOSPLENOMEGALY [None]
  - HISTIOCYTOSIS HAEMATOPHAGIC [None]
  - INTERNATIONAL NORMALISED RATIO DECREASED [None]
  - LUNG INFILTRATION [None]
  - LYMPHADENOPATHY [None]
  - PROTHROMBIN TIME SHORTENED [None]
  - RASH MACULO-PAPULAR [None]
  - RESPIRATORY RATE INCREASED [None]
  - WHITE BLOOD CELL COUNT DECREASED [None]
